FAERS Safety Report 7672149-1 (Version None)
Quarter: 2011Q3

REPORT INFORMATION
  Report Type: 
  Country: None (occurrence: None)
  Receive Date: 20110809
  Receipt Date: 20110727
  Transmission Date: 20111222
  Serious: Yes (Hospitalization, Other)
  Sender: FDA-Public Use
  Company Number: PHHY2011US67782

PATIENT
  Sex: Female
  Weight: 45.351 kg

DRUGS (3)
  1. ANASTROZOLE [Concomitant]
     Dosage: 1 MG, UNK
  2. SYNTHROID [Concomitant]
     Dosage: 150 MG, UNK
  3. GLEEVEC [Suspect]
     Dosage: 400 MG, BID
     Route: 048

REACTIONS (3)
  - BLINDNESS [None]
  - DEAFNESS BILATERAL [None]
  - NEOPLASM PROGRESSION [None]
